FAERS Safety Report 6910190-4 (Version None)
Quarter: 2010Q3

REPORT INFORMATION
  Report Type: 
  Country: None (occurrence: None)
  Receive Date: 20100806
  Receipt Date: 20100727
  Transmission Date: 20110219
  Serious: Yes (Hospitalization)
  Sender: FDA-Public Use
  Company Number: DE-NOVOPROD-308232

PATIENT
  Sex: Female
  Weight: 106.8 kg

DRUGS (7)
  1. VICTOZA [Suspect]
     Indication: TYPE 2 DIABETES MELLITUS
     Dosage: 1.8 MG, UNK
     Route: 058
     Dates: start: 20100119, end: 20100428
  2. METFORMIN HCL [Concomitant]
     Dosage: UNK
     Route: 048
  3. CALCIUM +D3 [Concomitant]
     Dosage: UNK
     Route: 048
  4. LISINOPRIL [Concomitant]
     Dosage: UNK
     Route: 048
  5. MEBEVERINE [Concomitant]
     Dosage: UNK
     Route: 048
  6. OMEPRAZOL                          /00661201/ [Concomitant]
     Dosage: UNK
     Route: 048
  7. PREDNISOLON                        /00016201/ [Concomitant]
     Dosage: UNK
     Route: 048

REACTIONS (1)
  - PANCREATITIS [None]
